FAERS Safety Report 7860083-3 (Version None)
Quarter: 2011Q4

REPORT INFORMATION
  Report Type: 
  Country: None (occurrence: None)
  Receive Date: 20111026
  Receipt Date: 20111017
  Transmission Date: 20120403
  Serious: Yes (Hospitalization)
  Sender: FDA-Public Use
  Company Number: FK201102276

PATIENT
  Age: 79 Year
  Sex: Male
  Weight: 99.7913 kg

DRUGS (2)
  1. DEXAMETHASONE SODIUM PHOSPHATE [Suspect]
     Indication: MULTIPLE MYELOMA
     Dosage: 40 MG, WEEKLY: (DURATION 20 UNKNOWN UNITS), INTRAVENOUS (NOT OTHERWISE SPECIFIED)
     Route: 042
     Dates: start: 20101230, end: 20110602
  2. VELCADE [Suspect]
     Indication: MULTIPLE MYELOMA
     Dosage: 1.4 UNKNOWN, 1 MINUTE INTRAVENOUS PUSH DAY 1,4,8,11, INTRAVENOUS (NOT OTHERWISE SPECIFIED)
     Route: 042
     Dates: start: 20101230, end: 20110602

REACTIONS (2)
  - RESPIRATORY FAILURE [None]
  - GENERALISED OEDEMA [None]
